FAERS Safety Report 9254593 (Version 1)
Quarter: 2013Q2

REPORT INFORMATION
  Report Type: Spontaneous
  Country: US (occurrence: US)
  Receive Date: 20130425
  Receipt Date: 20130425
  Transmission Date: 20140414
  Serious: Yes (Hospitalization)
  Sender: FDA-Public Use
  Company Number: US-ASTELLAS-2013US004281

PATIENT
  Sex: Female

DRUGS (1)
  1. TARCEVA [Suspect]
     Indication: LUNG NEOPLASM MALIGNANT
     Dosage: 100 MG, 3XWEEKLY
     Route: 048

REACTIONS (6)
  - Incorrect dose administered [Unknown]
  - Blood iron abnormal [Recovered/Resolved]
  - Blood urea abnormal [Recovered/Resolved]
  - Blood creatinine abnormal [Recovered/Resolved]
  - Liver function test abnormal [Recovered/Resolved]
  - Erythema nodosum [Recovered/Resolved]
